FAERS Safety Report 15549561 (Version 1)
Quarter: 2018Q4

REPORT INFORMATION
  Report Type: Spontaneous
  Country: US (occurrence: US)
  Receive Date: 20181024
  Receipt Date: 20181024
  Transmission Date: 20190205
  Serious: No
  Sender: FDA-Public Use
  Company Number: None

PATIENT
  Age: 31 Year
  Sex: Female
  Weight: 58.5 kg

DRUGS (5)
  1. LABETELOL 100MG [Concomitant]
  2. MULTIVITAMIN [Concomitant]
     Active Substance: VITAMINS
  3. CLARITIN [Concomitant]
     Active Substance: LORATADINE
  4. SUMATRIPTAN 100MG [Suspect]
     Active Substance: SUMATRIPTAN
     Indication: MIGRAINE
     Dosage: ?          QUANTITY:1 TABLET(S);?
     Route: 048
     Dates: start: 20181023, end: 20181023
  5. LEVOTHYROXINE 100MCG [Concomitant]
     Active Substance: LEVOTHYROXINE

REACTIONS (2)
  - Hypertension [None]
  - Chest pain [None]

NARRATIVE: CASE EVENT DATE: 20181023
